FAERS Safety Report 25628173 (Version 1)
Quarter: 2025Q3

REPORT INFORMATION
  Report Type: Spontaneous
  Country: US (occurrence: None)
  Receive Date: 20250731
  Receipt Date: 20250731
  Transmission Date: 20251021
  Serious: No
  Sender: FDA-CTU
  Company Number: None

PATIENT
  Age: 81 Year
  Sex: Female

DRUGS (1)
  1. KINERET [Suspect]
     Active Substance: ANAKINRA

REACTIONS (5)
  - Injection site reaction [None]
  - Injection site erythema [None]
  - Injection site rash [None]
  - Rash pruritic [None]
  - Therapy interrupted [None]

NARRATIVE: CASE EVENT DATE: 20250731
